FAERS Safety Report 14370538 (Version 1)
Quarter: 2018Q1

REPORT INFORMATION
  Report Type: Spontaneous
  Country: US (occurrence: US)
  Receive Date: 20180110
  Receipt Date: 20180110
  Transmission Date: 20180509
  Serious: No
  Sender: FDA-Public Use
  Company Number: US-PFIZER INC-2018005305

PATIENT
  Age: 6 Year
  Sex: Female

DRUGS (2)
  1. GENOTROPIN [Suspect]
     Active Substance: SOMATROPIN
     Indication: BLOOD GROWTH HORMONE ABNORMAL
     Dosage: 0.6 MG, 1X/DAY (0.6MG TAKES IT ONCE AT NIGHT INJECTION IN UPPER LEG)
  2. SIMILASAN FOR INFLAMMATION OF THE MOUTH AND THROAT [Concomitant]
     Active Substance: HOMEOPATHICS
     Indication: UPPER RESPIRATORY TRACT CONGESTION
     Dosage: 2.5 ML, AS NEEDED

REACTIONS (3)
  - Influenza [Not Recovered/Not Resolved]
  - Drug dose omission [Not Recovered/Not Resolved]
  - Device battery issue [Not Recovered/Not Resolved]

NARRATIVE: CASE EVENT DATE: 20180102
